FAERS Safety Report 16498465 (Version 1)
Quarter: 2019Q2

REPORT INFORMATION
  Report Type: Spontaneous
  Country: US (occurrence: US)
  Receive Date: 20190629
  Receipt Date: 20190629
  Transmission Date: 20190711
  Serious: No
  Sender: FDA-Public Use
  Company Number: US-JNJFOC-20190629497

PATIENT

DRUGS (2)
  1. DARZALEX [Concomitant]
     Active Substance: DARATUMUMAB
  2. PEPCID [Suspect]
     Active Substance: FAMOTIDINE
     Indication: INFUSION RELATED REACTION
     Route: 065

REACTIONS (2)
  - Product use in unapproved indication [Unknown]
  - Therapeutic response unexpected [Unknown]
